FAERS Safety Report 10434631 (Version 1)
Quarter: 2014Q3

REPORT INFORMATION
  Report Type: Spontaneous
  Country: DE (occurrence: DE)
  Receive Date: 20140906
  Receipt Date: 20140906
  Transmission Date: 20150326
  Serious: Yes (Other)
  Sender: FDA-Public Use
  Company Number: DE-DRREDDYS-GER/GER/14/0042688

PATIENT
  Age: 27 Year
  Sex: Male

DRUGS (2)
  1. IBUBETA 400 AKUT (IBUPROFEN) [Suspect]
     Active Substance: IBUPROFEN
     Indication: PRODUCT USED FOR UNKNOWN INDICATION
     Route: 048
     Dates: start: 20140826, end: 20140826
  2. PARACETAMOL 500 [Suspect]
     Active Substance: ACETAMINOPHEN
     Indication: PRODUCT USED FOR UNKNOWN INDICATION
     Route: 048
     Dates: start: 20140826, end: 20140826

REACTIONS (4)
  - Tachycardia [Unknown]
  - Accidental overdose [Unknown]
  - Diastolic hypertension [Unknown]
  - Systolic hypertension [Unknown]

NARRATIVE: CASE EVENT DATE: 20140826
